FAERS Safety Report 6204793-2 (Version None)
Quarter: 2009Q2

REPORT INFORMATION
  Report Type: 
  Country: None (occurrence: None)
  Receive Date: 20090522
  Receipt Date: 20090514
  Transmission Date: 20091009
  Serious: Yes (Death)
  Sender: FDA-Public Use
  Company Number: 2009005161

PATIENT
  Age: 27 Year
  Sex: Female
  Weight: 86.1834 kg

DRUGS (4)
  1. PROVIGIL [Suspect]
     Indication: NARCOLEPSY
     Dosage: 200 MG, ORAL
     Route: 048
  2. RISPERDAL [Concomitant]
  3. ATIVAN [Concomitant]
  4. CELEXA [Concomitant]

REACTIONS (1)
  - DEATH [None]
